FAERS Safety Report 23351617 (Version 1)
Quarter: 2023Q4

REPORT INFORMATION
  Report Type: Spontaneous
  Country: US (occurrence: None)
  Receive Date: 20231229
  Receipt Date: 20231229
  Transmission Date: 20240109
  Serious: No
  Sender: FDA-Public Use
  Company Number: None

PATIENT
  Age: 41 Year
  Sex: Female

DRUGS (13)
  1. LONSURF [Suspect]
     Active Substance: TIPIRACIL HYDROCHLORIDE\TRIFLURIDINE
     Dosage: FREQUENCY : TWICE A DAY;?20-8.19 MG: TAKE 3 TABLETS BY MOUTH TWICE DAILY WITH FOOD ON DAYS 1-SAND 8-
     Route: 048
  2. AMLODIPINE 10MG [Concomitant]
  3. AMLODIPINE 5MG [Concomitant]
  4. CLOBETASOL PROPIONATE [Concomitant]
     Active Substance: CLOBETASOL PROPIONATE
  5. DIAZEPAM TAB [Concomitant]
  6. EPIPEN 2-PAK INJ [Concomitant]
  7. HYDROMORPHON TAB 2MG [Concomitant]
  8. LOMOTIL TAB [Concomitant]
  9. ONDANSETRON TAB [Concomitant]
  10. PROMETHAZINE SUP 25MG [Concomitant]
  11. PROMETHAZINE [Concomitant]
  12. TRAMADOL HCL TAB 50MG [Concomitant]
  13. VENTOLIN HFA AER [Concomitant]

REACTIONS (2)
  - Nausea [None]
  - Vomiting [None]

NARRATIVE: CASE EVENT DATE: 20231228
